FAERS Safety Report 25981179 (Version 3)
Quarter: 2025Q4

REPORT INFORMATION
  Report Type: Report from Study
  Country: US (occurrence: US)
  Receive Date: 20251030
  Receipt Date: 20251217
  Transmission Date: 20260118
  Serious: No
  Sender: PFIZER
  Company Number: US-PFIZER INC-202500197886

PATIENT
  Age: 53 Year
  Sex: Female

DRUGS (1)
  1. VELSIPITY [Suspect]
     Active Substance: ETRASIMOD ARGININE
     Dosage: 2 MG

REACTIONS (5)
  - Nausea [Unknown]
  - Motion sickness [Unknown]
  - Hypersensitivity [Unknown]
  - Pain [Unknown]
  - Malaise [Unknown]
